FAERS Safety Report 4491722-5 (Version None)
Quarter: 2004Q4

REPORT INFORMATION
  Report Type: 
  Country: None (occurrence: None)
  Receive Date: 20041103
  Receipt Date: 20040510
  Transmission Date: 20050328
  Serious: Yes (Hospitalization, Disabling)
  Sender: FDA-Public Use
  Company Number: US-MERCK-0405USA00617

PATIENT
  Age: 52 Year
  Sex: Male
  Weight: 113 kg

DRUGS (7)
  1. VIOXX [Suspect]
     Indication: ARTHRITIS
     Route: 048
     Dates: start: 20010101, end: 20011207
  2. ENDOCET [Concomitant]
     Route: 065
  3. SMZ-TMP [Concomitant]
     Route: 065
  4. AUGMENTIN '125' [Concomitant]
     Route: 065
  5. HYDROCODONE BITARTRATE AND ACETAMINOPHEN [Concomitant]
     Route: 065
  6. DIAZEPAM [Concomitant]
     Route: 065
  7. DIFLUCAN [Concomitant]
     Route: 065

REACTIONS (3)
  - HYPERTENSION [None]
  - INJURY [None]
  - MYOCARDIAL INFARCTION [None]
